FAERS Safety Report 16712512 (Version 3)
Quarter: 2020Q1

REPORT INFORMATION
  Report Type: Report from Study
  Country: US (occurrence: US)
  Receive Date: 20190816
  Receipt Date: 20200119
  Transmission Date: 20200409
  Serious: No
  Sender: FDA-Public Use
  Company Number: PHEH2019US033763

PATIENT
  Sex: Female

DRUGS (1)
  1. GILENYA [Suspect]
     Active Substance: FINGOLIMOD HYDROCHLORIDE
     Indication: MULTIPLE SCLEROSIS
     Dosage: 0.5 MG, QD
     Route: 048
     Dates: start: 2011

REACTIONS (7)
  - Full blood count decreased [Unknown]
  - Balance disorder [Unknown]
  - Hepatic enzyme abnormal [Unknown]
  - Liver function test abnormal [Unknown]
  - Fatigue [Unknown]
  - White blood cell count decreased [Unknown]
  - Hepatic enzyme increased [Unknown]
